FAERS Safety Report 8350028-4 (Version None)
Quarter: 2012Q2

REPORT INFORMATION
  Report Type: 
  Country: None (occurrence: None)
  Receive Date: 20120510
  Receipt Date: 20120507
  Transmission Date: 20120825
  Serious: Yes (Death)
  Sender: FDA-Public Use
  Company Number: US-ACTELION-A-US2012-64913

PATIENT

DRUGS (3)
  1. VENTAVIS [Suspect]
     Indication: PULMONARY ARTERIAL HYPERTENSION
     Dosage: 5 UG, 6XDAY
     Route: 055
     Dates: start: 20080905
  2. LETAIRIS [Concomitant]
  3. SILDENAFIL [Concomitant]

REACTIONS (4)
  - DYSPNOEA [None]
  - DIARRHOEA [None]
  - HYPOXIA [None]
  - CELLULITIS [None]
